FAERS Safety Report 8284229-0 (Version None)
Quarter: 2012Q2

REPORT INFORMATION
  Report Type: 
  Country: None (occurrence: None)
  Receive Date: 20120413
  Receipt Date: 20110831
  Transmission Date: 20120825
  Serious: No
  Sender: FDA-Public Use
  Company Number: US-ASTRAZENECA-2011SE52618

PATIENT
  Age: 55 Year
  Sex: Female
  Weight: 72.4 kg

DRUGS (16)
  1. EVISTA [Concomitant]
     Indication: OSTEOPOROSIS
  2. LIDEX [Concomitant]
  3. TRILEPTAL [Concomitant]
  4. CLONAZEPAM [Concomitant]
     Indication: SLEEP DISORDER
  5. MORPHINE [Concomitant]
  6. OXYCODONE/ACETAMINOPHEN [Concomitant]
     Indication: BREAKTHROUGH PAIN
  7. NEXIUM [Suspect]
     Route: 048
  8. CEPHALEXIN [Concomitant]
  9. EMLA [Concomitant]
     Indication: SKIN BURNING SENSATION
  10. LISINOPRIL [Suspect]
     Indication: HYPERTENSION
     Route: 048
  11. MULTIVITAMIN WITH MINERALS TAB [Concomitant]
  12. PRAVACHOL [Concomitant]
     Indication: BLOOD CHOLESTEROL INCREASED
  13. RANITIDINE [Concomitant]
     Indication: GASTROOESOPHAGEAL REFLUX DISEASE
  14. TRAZODONE HCL [Concomitant]
     Indication: SLEEP DISORDER
  15. FLEXERIL [Concomitant]
     Indication: MUSCLE SPASMS
  16. LAC-HYDRIN [Concomitant]
     Indication: SKIN EXFOLIATION

REACTIONS (4)
  - BLOOD CHOLESTEROL ABNORMAL [None]
  - SLEEP DISORDER [None]
  - MUSCLE SPASMS [None]
  - BREAKTHROUGH PAIN [None]
